FAERS Safety Report 17555933 (Version 2)
Quarter: 2020Q2

REPORT INFORMATION
  Report Type: Spontaneous
  Country: US (occurrence: US)
  Receive Date: 20200318
  Receipt Date: 20200414
  Transmission Date: 20200713
  Serious: Yes (Hospitalization, Other)
  Sender: FDA-Public Use
  Company Number: US-PFIZER INC-2020115864

PATIENT
  Age: 71 Year
  Sex: Female

DRUGS (1)
  1. XELJANZ [Suspect]
     Active Substance: TOFACITINIB CITRATE
     Dosage: UNK
     Route: 048
     Dates: end: 201904

REACTIONS (9)
  - Mania [Unknown]
  - Sepsis [Unknown]
  - Back disorder [Not Recovered/Not Resolved]
  - Drug hypersensitivity [Unknown]
  - Renal disorder [Recovering/Resolving]
  - Pneumonia [Unknown]
  - Herpes zoster [Unknown]
  - Dry skin [Not Recovered/Not Resolved]
  - Pruritus [Not Recovered/Not Resolved]
